FAERS Safety Report 8069034-2 (Version None)
Quarter: 2012Q1

REPORT INFORMATION
  Report Type: 
  Country: None (occurrence: None)
  Receive Date: 20120125
  Receipt Date: 20120119
  Transmission Date: 20120608
  Serious: Yes (Other)
  Sender: FDA-Public Use
  Company Number: GB-GENZYME-CLOF-1001838

PATIENT
  Sex: Male
  Weight: 105 kg

DRUGS (6)
  1. DAUNORUBICIN HCL [Suspect]
     Dosage: 110 MG, OD
     Route: 065
     Dates: start: 20070716, end: 20070720
  2. DAUNORUBICIN HCL [Suspect]
     Dosage: 110 MG, OD
     Route: 065
     Dates: start: 20070829, end: 20070831
  3. MYLOTARG [Suspect]
     Indication: ACUTE MYELOID LEUKAEMIA
     Dosage: 6.6 MG, ONCE
     Route: 065
     Dates: start: 20070606, end: 20070606
  4. EVOLTRA [Suspect]
     Dosage: 44 MG, OD
     Route: 065
     Dates: start: 20070716, end: 20070720
  5. DAUNORUBICIN HCL [Suspect]
     Indication: ACUTE MYELOID LEUKAEMIA
     Dosage: 110 MG, OD
     Route: 065
     Dates: start: 20070606, end: 20070610
  6. EVOLTRA [Suspect]
     Indication: ACUTE MYELOID LEUKAEMIA
     Dosage: 44 MG, OD
     Route: 065
     Dates: start: 20070606, end: 20070610

REACTIONS (2)
  - PYREXIA [None]
  - RASH GENERALISED [None]
